FAERS Safety Report 5088272-4 (Version None)
Quarter: 2006Q3

REPORT INFORMATION
  Report Type: 
  Country: None (occurrence: None)
  Receive Date: 20060823
  Receipt Date: 20060823
  Transmission Date: 20061208
  Serious: Yes (Other)
  Sender: FDA-Public Use
  Company Number: None

PATIENT
  Age: 63 Year
  Sex: Female
  Weight: 106.5953 kg

DRUGS (1)
  1. COPAXONE [Suspect]
     Indication: MULTIPLE SCLEROSIS
     Dosage: 250 MG SUBCUT. QD
     Route: 058
     Dates: start: 20060701, end: 20060801

REACTIONS (3)
  - GENERALISED ERYTHEMA [None]
  - MUSCULAR WEAKNESS [None]
  - SYNCOPE [None]
